FAERS Safety Report 6036187-7 (Version None)
Quarter: 2009Q1

REPORT INFORMATION
  Report Type: 
  Country: None (occurrence: None)
  Receive Date: 20090113
  Receipt Date: 20090112
  Transmission Date: 20090719
  Serious: Yes (Other)
  Sender: FDA-Public Use
  Company Number: US-B.I. PHARMACEUTICALS,INC./RIDGEFIELD-2008-BP-04752BP

PATIENT

DRUGS (2)
  1. VIRAMUNE [Suspect]
     Dosage: 400MG
  2. COMBIVIR [Suspect]
     Dosage: 400MG

REACTIONS (1)
  - ULTRASOUND ANTENATAL SCREEN ABNORMAL [None]
